FAERS Safety Report 13859130 (Version 3)
Quarter: 2017Q3

REPORT INFORMATION
  Report Type: Spontaneous
  Country: US (occurrence: US)
  Receive Date: 20170811
  Receipt Date: 20170907
  Transmission Date: 20171127
  Serious: Yes (Other)
  Sender: FDA-Public Use
  Company Number: US-AMGEN-USASP2017119159

PATIENT
  Age: 62 Year
  Sex: Female
  Weight: 70.75 kg

DRUGS (17)
  1. ENBREL [Suspect]
     Active Substance: ETANERCEPT
     Indication: RHEUMATOID ARTHRITIS
     Dosage: UNK
     Route: 065
  2. PEPCID [Suspect]
     Active Substance: FAMOTIDINE
     Indication: PRODUCT USED FOR UNKNOWN INDICATION
     Dosage: 20 MG, QD
     Route: 048
     Dates: start: 20170731
  3. CLONAZEPAM. [Concomitant]
     Active Substance: CLONAZEPAM
     Dosage: 1 MG, HS
     Route: 048
     Dates: start: 20170630
  4. CALCITONIN [Concomitant]
     Active Substance: CALCITONIN
     Dosage: 200 UNIT/ ACT ONE PUFF IN ONE NOSTRIL DAILY, ALTERNATING SIDES
     Route: 045
     Dates: start: 20170731
  5. HYDROCODONE [Concomitant]
     Active Substance: HYDROCODONE
     Dosage: 10/325
  6. CALCIUM [Concomitant]
     Active Substance: CALCIUM
     Dosage: 600 MG, BID
  7. TYLENOL EXTRA STRENGTH [Concomitant]
     Active Substance: ACETAMINOPHEN
     Dosage: 500 MG, QD
     Route: 048
     Dates: start: 20170731
  8. CHELATED CALCIUM MAGNESIUM [Concomitant]
     Indication: MUSCLE SPASMS
     Dosage: 2 TABS, BID
  9. SEPTRA [Suspect]
     Active Substance: SULFAMETHOXAZOLE\TRIMETHOPRIM
     Indication: PRODUCT USED FOR UNKNOWN INDICATION
     Dosage: UNK
     Route: 065
  10. VITAMIN D [Concomitant]
     Active Substance: CHOLECALCIFEROL
     Dosage: 4000 IU, QD
  11. HUMIRA [Suspect]
     Active Substance: ADALIMUMAB
     Indication: RHEUMATOID ARTHRITIS
     Dosage: UNK
     Route: 065
  12. PLAQUENIL [Concomitant]
     Active Substance: HYDROXYCHLOROQUINE SULFATE
     Dosage: 200 MG, BID
     Route: 048
     Dates: start: 20170630
  13. XELJANZ [Concomitant]
     Active Substance: TOFACITINIB CITRATE
     Dosage: 5 MG, BID
     Route: 048
  14. EFFEXOR [Concomitant]
     Active Substance: VENLAFAXINE HYDROCHLORIDE
     Dosage: 75 MG, UNK
     Route: 048
     Dates: start: 20170630
  15. LORTAB [Concomitant]
     Active Substance: ACETAMINOPHEN\HYDROCODONE BITARTRATE
     Indication: ARTHRALGIA
     Dosage: 10-325 MG, Q8H
     Route: 048
     Dates: start: 20170630
  16. CYCLOBENZAPRINE HCL [Concomitant]
     Active Substance: CYCLOBENZAPRINE HYDROCHLORIDE
     Dosage: 10 MG, QD
     Route: 048
     Dates: start: 20170630
  17. MTX [Suspect]
     Active Substance: METHOTREXATE SODIUM
     Indication: RHEUMATOID ARTHRITIS
     Dosage: UNK
     Route: 065

REACTIONS (7)
  - Rheumatoid arthritis [Unknown]
  - Insomnia [Unknown]
  - Weight increased [Unknown]
  - Dyspepsia [Unknown]
  - Dyspnoea [Unknown]
  - Urinary tract infection [Unknown]
  - Treatment failure [Unknown]

NARRATIVE: CASE EVENT DATE: 20170731
